FAERS Safety Report 7795722-9 (Version None)
Quarter: 2011Q4

REPORT INFORMATION
  Report Type: 
  Country: None (occurrence: None)
  Receive Date: 20111004
  Receipt Date: 20110926
  Transmission Date: 20120403
  Serious: Yes (Hospitalization, Other)
  Sender: FDA-Public Use
  Company Number: NZ-B.I. PHARMACEUTICALS,INC./RIDGEFIELD-2011-AU-00979AU

PATIENT
  Sex: Male
  Weight: 69 kg

DRUGS (4)
  1. ACETAMINOPHEN [Concomitant]
     Dosage: 4000 MG
     Dates: start: 20110803
  2. IMOVANE [Concomitant]
     Dates: start: 20110803
  3. PRADAXA [Suspect]
     Indication: ATRIAL FIBRILLATION
     Dosage: 220 MG
     Dates: start: 20110804, end: 20110804
  4. FUROSEMIDE [Concomitant]
     Dates: start: 20110803

REACTIONS (1)
  - CEREBROVASCULAR ACCIDENT [None]
